FAERS Safety Report 14711131 (Version 1)
Quarter: 2018Q2

REPORT INFORMATION
  Report Type: Spontaneous
  Country: US (occurrence: US)
  Receive Date: 20180403
  Receipt Date: 20180403
  Transmission Date: 20180711
  Serious: Yes (Other)
  Sender: FDA-Public Use
  Company Number: US-PFIZER INC-2018132610

PATIENT
  Age: 74 Year
  Sex: Female
  Weight: 49.62 kg

DRUGS (2)
  1. FASLODEX [Concomitant]
     Active Substance: FULVESTRANT
     Indication: BREAST CANCER METASTATIC
     Dosage: 500 MG, MONTHLY (500MG INTRAMUSCULAR INJECTION ONCE EVERY 4 WEEKS)
     Route: 030
     Dates: start: 20180208
  2. IBRANCE [Suspect]
     Active Substance: PALBOCICLIB
     Indication: BREAST CANCER METASTATIC
     Dosage: 75 MG, CYCLIC (75MG CAPSULE ONCE DAILY BY MOUTH FOR 21 DAYS AND THEN OFF A WEEK)
     Route: 048
     Dates: start: 20180219, end: 20180305

REACTIONS (1)
  - Blood creatinine increased [Recovering/Resolving]

NARRATIVE: CASE EVENT DATE: 20180220
